FAERS Safety Report 7850216-7 (Version None)
Quarter: 2011Q4

REPORT INFORMATION
  Report Type: 
  Country: None (occurrence: None)
  Receive Date: 20111026
  Receipt Date: 20111005
  Transmission Date: 20120403
  Serious: Yes (Hospitalization)
  Sender: FDA-Public Use
  Company Number: CA-JNJFOC-20110906182

PATIENT
  Sex: Male
  Weight: 86 kg

DRUGS (4)
  1. REMICADE [Suspect]
     Indication: CROHN'S DISEASE
     Route: 042
     Dates: start: 20080714
  2. GABAPENTIN [Concomitant]
  3. METFORMIN HCL [Concomitant]
  4. AZATHIOPRINE [Concomitant]

REACTIONS (1)
  - SUICIDE ATTEMPT [None]
